FAERS Safety Report 11889707 (Version 1)
Quarter: 2016Q1

REPORT INFORMATION
  Report Type: Report from Study
  Country: US (occurrence: US)
  Receive Date: 20160105
  Receipt Date: 20160105
  Transmission Date: 20160526
  Serious: Yes (Hospitalization)
  Sender: FDA-Public Use
  Company Number: US-TAKEDA-2016MPI000005

PATIENT
  Age: 46 Year
  Sex: Female
  Weight: 71.66 kg

DRUGS (11)
  1. DEXAMETHASONE. [Suspect]
     Active Substance: DEXAMETHASONE
     Indication: PLASMA CELL MYELOMA
     Dosage: 10 MG, UNK
     Route: 048
     Dates: start: 20151214, end: 20151224
  2. NORA-BE [Concomitant]
     Dosage: UNK, QD
     Route: 048
  3. BACTRIM [Concomitant]
     Active Substance: SULFAMETHOXAZOLE\TRIMETHOPRIM
     Dosage: 160-800 MG
     Route: 048
     Dates: start: 20150928
  4. VELCADE [Suspect]
     Active Substance: BORTEZOMIB
     Indication: PLASMA CELL MYELOMA
     Dosage: 1.3 MG/M2, UNK
     Route: 058
     Dates: start: 20151214, end: 20151224
  5. NEUPOGEN [Concomitant]
     Active Substance: FILGRASTIM
     Dosage: 480 ?G, UNK
     Route: 058
  6. ATIVAN [Concomitant]
     Active Substance: LORAZEPAM
     Indication: ANXIETY
     Dosage: 0.5 MG, UNK
     Route: 048
  7. LENALIDOMIDE [Suspect]
     Active Substance: LENALIDOMIDE
     Indication: PLASMA CELL MYELOMA
     Dosage: 25 MG, UNK
     Route: 048
     Dates: start: 20151214, end: 20151224
  8. ASPIRIN                            /00002701/ [Concomitant]
     Active Substance: ASPIRIN
     Dosage: 325 MG, QD
     Dates: start: 20150513
  9. ACYCLOVIR                          /00587301/ [Concomitant]
     Active Substance: ACYCLOVIR
     Dosage: 400 MG, TID
     Route: 048
     Dates: start: 20150909
  10. FOLIC ACID. [Concomitant]
     Active Substance: FOLIC ACID
     Dosage: 1 MG, QD
     Route: 048
  11. ATIVAN [Concomitant]
     Active Substance: LORAZEPAM
     Indication: SLEEP DISORDER

REACTIONS (1)
  - Infectious colitis [Unknown]

NARRATIVE: CASE EVENT DATE: 20151224
